FAERS Safety Report 20842071 (Version 1)
Quarter: 2022Q2

REPORT INFORMATION
  Report Type: Spontaneous
  Country: US (occurrence: US)
  Receive Date: 20220518
  Receipt Date: 20220518
  Transmission Date: 20220721
  Serious: No
  Sender: FDA-Public Use
  Company Number: US-BION-009771

PATIENT
  Sex: Female
  Weight: 56.7 kg

DRUGS (5)
  1. MOTRIN IB [Suspect]
     Active Substance: IBUPROFEN
     Indication: Pain in extremity
     Dosage: STRENGTH: 200 MG
  2. TYLENOL EXTRA STRENGTH [Suspect]
     Active Substance: ACETAMINOPHEN
     Indication: Pain in extremity
     Dosage: STRENGTH: 500MG
  3. ROSUVASTATIN [Concomitant]
     Active Substance: ROSUVASTATIN
     Indication: Blood cholesterol increased
     Dosage: DAILY
  4. UNITHROID [Concomitant]
     Active Substance: LEVOTHYROXINE SODIUM
     Dosage: STRENGTH: 100MCG DAILY
  5. PFIZER-BIONTECH COVID-19 VACCINE [Concomitant]
     Active Substance: TOZINAMERAN

REACTIONS (1)
  - Drug ineffective [Not Recovered/Not Resolved]
